FAERS Safety Report 20350031 (Version 1)
Quarter: 2022Q1

REPORT INFORMATION
  Report Type: Spontaneous
  Country: US (occurrence: None)
  Receive Date: 20220119
  Receipt Date: 20220119
  Transmission Date: 20220423
  Serious: No
  Sender: FDA-Public Use
  Company Number: None

PATIENT
  Age: 70 Year
  Sex: Male

DRUGS (1)
  1. LISINOPRIL [Suspect]
     Active Substance: LISINOPRIL
     Indication: Hypertension
     Dosage: 5 MG EVERY DAY PO?
     Route: 048
     Dates: start: 20210903, end: 20220115

REACTIONS (1)
  - Angioedema [None]

NARRATIVE: CASE EVENT DATE: 20220115
